FAERS Safety Report 6516516-8 (Version None)
Quarter: 2009Q4

REPORT INFORMATION
  Report Type: 
  Country: None (occurrence: None)
  Receive Date: 20091223
  Receipt Date: 20091211
  Transmission Date: 20100525
  Serious: Yes (Other)
  Sender: FDA-Public Use
  Company Number: GB-ELI_LILLY_AND_COMPANY-GB200912003080

PATIENT
  Age: 57 Year
  Sex: Male

DRUGS (11)
  1. EXENATIDE [Suspect]
     Indication: TYPE 2 DIABETES MELLITUS
     Dosage: 10 UG, UNK
     Route: 030
     Dates: start: 20080716
  2. AMLODIPINE [Concomitant]
  3. ASPIRIN [Concomitant]
     Dosage: 75 MG, UNK
  4. ATORVASTATIN CALCIUM [Concomitant]
  5. DIHYDROCODEINE BITARTRATE INJ [Concomitant]
  6. GLICLAZIDE [Concomitant]
     Dosage: 80 MG, UNK
  7. LYRICA [Concomitant]
     Dosage: 200 MG, UNK
  8. METFORMIN HCL [Concomitant]
     Dosage: 500 MG, UNK
  9. MINOCIN [Concomitant]
  10. NICORANDIL [Concomitant]
  11. OMEPRAZOLE [Concomitant]

REACTIONS (4)
  - ALTERED STATE OF CONSCIOUSNESS [None]
  - ASTHENIA [None]
  - INCORRECT ROUTE OF DRUG ADMINISTRATION [None]
  - PALPITATIONS [None]
